FAERS Safety Report 16295419 (Version 1)
Quarter: 2019Q2

REPORT INFORMATION
  Report Type: Spontaneous
  Country: US (occurrence: US)
  Receive Date: 20190509
  Receipt Date: 20190509
  Transmission Date: 20190711
  Serious: No
  Sender: FDA-Public Use
  Company Number: US-ALKERMES INC.-ALK-2018-004683

PATIENT
  Age: 47 Year
  Sex: Male
  Weight: 77.98 kg

DRUGS (2)
  1. VIVITROL [Suspect]
     Active Substance: NALTREXONE
     Indication: DRUG DEPENDENCE
     Dosage: 380 MG, QMO
     Route: 030
     Dates: start: 20180820, end: 20180820
  2. OTHER THERAPEUTIC PRODUCTS [Suspect]
     Active Substance: UNSPECIFIED INGREDIENT
     Indication: DRUG DEPENDENCE

REACTIONS (10)
  - Abdominal distension [Unknown]
  - Dysstasia [Not Recovered/Not Resolved]
  - Hyperhidrosis [Unknown]
  - Inadequate analgesia [Unknown]
  - Gait disturbance [Not Recovered/Not Resolved]
  - Withdrawal syndrome [Unknown]
  - Back injury [Unknown]
  - Insomnia [Recovered/Resolved]
  - Back pain [Not Recovered/Not Resolved]
  - Decreased appetite [Recovered/Resolved]

NARRATIVE: CASE EVENT DATE: 2018
